FAERS Safety Report 7683434-1 (Version None)
Quarter: 2011Q3

REPORT INFORMATION
  Report Type: 
  Country: None (occurrence: None)
  Receive Date: 20110815
  Receipt Date: 20110804
  Transmission Date: 20111222
  Serious: Yes (Other)
  Sender: FDA-Public Use
  Company Number: PHHY2011TN68897

PATIENT
  Age: 24 Year
  Sex: Female

DRUGS (4)
  1. FUROSEMIDE [Suspect]
     Indication: GLOMERULONEPHRITIS
     Dosage: 40 MG, DAILY
  2. HYDROXYCHLOROQUINE [Suspect]
     Indication: GLOMERULONEPHRITIS
     Dosage: 200 MG/KG, UNK
  3. SPIRONOLACTONE [Suspect]
     Indication: GLOMERULONEPHRITIS
  4. PREDNISONE [Suspect]
     Indication: GLOMERULONEPHRITIS
     Dosage: 1 MG/KG, UNK

REACTIONS (7)
  - RASH MACULO-PAPULAR [None]
  - ERYTHEMA [None]
  - DERMATITIS BULLOUS [None]
  - EPIDERMAL NECROSIS [None]
  - PURPURA [None]
  - ORAL DISORDER [None]
  - GENITAL LESION [None]
